FAERS Safety Report 19176214 (Version 1)
Quarter: 2021Q2

REPORT INFORMATION
  Report Type: Report from Study
  Country: US (occurrence: US)
  Receive Date: 20210423
  Receipt Date: 20210423
  Transmission Date: 20210717
  Serious: Yes (Hospitalization, Other)
  Sender: FDA-Public Use
  Company Number: US-PRAGMA-2021-US-008727

PATIENT
  Age: 72 Year
  Sex: Female
  Weight: 125.65 kg

DRUGS (11)
  1. VITAMIN D [Concomitant]
     Active Substance: VITAMIN D NOS
  2. METHOCARBAMOL. [Concomitant]
     Active Substance: METHOCARBAMOL
     Dosage: 750 MG
     Route: 065
  3. DILTIAZEM. [Concomitant]
     Active Substance: DILTIAZEM
     Route: 065
  4. COVID 19 VACCINE [Concomitant]
     Dosage: 1 IN 1 ONCE
     Route: 030
     Dates: start: 20210329, end: 20210329
  5. MESALAMINE. [Concomitant]
     Active Substance: MESALAMINE
  6. BUMETANIDE. [Concomitant]
     Active Substance: BUMETANIDE
     Dosage: 1 TABLET
     Route: 065
  7. POTASSIUM CHLORIDE. [Concomitant]
     Active Substance: POTASSIUM CHLORIDE
     Route: 065
  8. KEFLEX [Suspect]
     Active Substance: CEPHALEXIN
     Indication: CELLULITIS
     Route: 065
  9. METHOTREXATE. [Concomitant]
     Active Substance: METHOTREXATE
     Route: 065
  10. WARFARIN [Concomitant]
     Active Substance: WARFARIN
     Route: 065
  11. METOPROLOL. [Concomitant]
     Active Substance: METOPROLOL
     Route: 065

REACTIONS (14)
  - Stomatitis [Unknown]
  - Pain [Unknown]
  - Arthralgia [Unknown]
  - Heart rate abnormal [Unknown]
  - Cervical vertebral fracture [Unknown]
  - Fall [Recovered/Resolved]
  - Dyspepsia [Unknown]
  - Feeding disorder [Unknown]
  - Facial bones fracture [Unknown]
  - Clostridium difficile infection [Recovered/Resolved]
  - Blood potassium decreased [Unknown]
  - Atrial fibrillation [Unknown]
  - Dehydration [Unknown]
  - Oropharyngeal pain [Unknown]

NARRATIVE: CASE EVENT DATE: 20210103
